FAERS Safety Report 15550466 (Version 1)
Quarter: 2018Q4

REPORT INFORMATION
  Report Type: Spontaneous
  Country: US (occurrence: US)
  Receive Date: 20181019
  Receipt Date: 20181019
  Transmission Date: 20190205
  Serious: No
  Sender: FDA-Public Use
  Company Number: None

PATIENT
  Age: 48 Year
  Sex: Female

DRUGS (1)
  1. GLATIRAMER 40MG PFS INJ (12/BOX) [Suspect]
     Active Substance: GLATIRAMER
     Dates: start: 201805

REACTIONS (5)
  - Dyspnoea [None]
  - Apparent death [None]
  - Chest discomfort [None]
  - Product substitution issue [None]
  - Flushing [None]

NARRATIVE: CASE EVENT DATE: 20180606
